FAERS Safety Report 23014591 (Version 1)
Quarter: 2023Q4

REPORT INFORMATION
  Report Type: Spontaneous
  Country: US (occurrence: US)
  Receive Date: 20231002
  Receipt Date: 20231002
  Transmission Date: 20240109
  Serious: No
  Sender: FDA-Public Use
  Company Number: US-drreddys-SPO/USA/23/0175518

PATIENT
  Age: 15 Year

DRUGS (2)
  1. ZENATANE [Suspect]
     Active Substance: ISOTRETINOIN
     Indication: Product used for unknown indication
     Dosage: RMA ISSUE DATES: 02 DECEMBER 2021 03:51:46 PM, 09 FEBRUARY 2022 06:12:57 PM, 10 MARCH 2022 03:42:28
  2. ZENATANE [Suspect]
     Active Substance: ISOTRETINOIN
     Dosage: RMA ISSUE DATES: 17 APRIL 2023 04:25:26 PM

REACTIONS (1)
  - Therapy cessation [Unknown]
